FAERS Safety Report 21338618 (Version 1)
Quarter: 2022Q3

REPORT INFORMATION
  Report Type: Spontaneous
  Country: IT (occurrence: IT)
  Receive Date: 20220915
  Receipt Date: 20220915
  Transmission Date: 20221026
  Serious: Yes (Death)
  Sender: FDA-Public Use
  Company Number: IT-TEVA-2022-IT-2072253

PATIENT
  Age: 31 Year
  Sex: Male

DRUGS (16)
  1. CISPLATIN [Suspect]
     Active Substance: CISPLATIN
     Indication: Gastric cancer
     Route: 065
  2. CISPLATIN [Suspect]
     Active Substance: CISPLATIN
     Indication: Metastatic gastric cancer
  3. CISPLATIN [Suspect]
     Active Substance: CISPLATIN
     Indication: HER2 positive gastric cancer
  4. FLUOROURACIL [Suspect]
     Active Substance: FLUOROURACIL
     Indication: Gastric cancer
     Route: 065
  5. FLUOROURACIL [Suspect]
     Active Substance: FLUOROURACIL
     Indication: Metastatic gastric cancer
  6. FLUOROURACIL [Suspect]
     Active Substance: FLUOROURACIL
     Indication: HER2 positive gastric cancer
  7. PACLITAXEL [Suspect]
     Active Substance: PACLITAXEL
     Indication: Gastric cancer
     Route: 065
  8. PACLITAXEL [Suspect]
     Active Substance: PACLITAXEL
     Indication: Metastatic gastric cancer
  9. PACLITAXEL [Suspect]
     Active Substance: PACLITAXEL
     Indication: HER2 positive gastric cancer
  10. TRASTUZUMAB [Suspect]
     Active Substance: TRASTUZUMAB
     Indication: Gastric cancer
     Route: 065
  11. TRASTUZUMAB [Suspect]
     Active Substance: TRASTUZUMAB
     Indication: Metastatic gastric cancer
  12. TRASTUZUMAB [Suspect]
     Active Substance: TRASTUZUMAB
     Indication: HER2 positive gastric cancer
  13. RAMUCIRUMAB [Suspect]
     Active Substance: RAMUCIRUMAB
     Indication: Gastric cancer
     Route: 065
  14. RAMUCIRUMAB [Suspect]
     Active Substance: RAMUCIRUMAB
     Indication: Metastatic gastric cancer
  15. RAMUCIRUMAB [Suspect]
     Active Substance: RAMUCIRUMAB
     Indication: HER2 positive gastric cancer
  16. OXYCODONE [Concomitant]
     Active Substance: OXYCODONE
     Indication: Pain
     Route: 065

REACTIONS (1)
  - Drug ineffective [Fatal]
